FAERS Safety Report 7908342-X (Version None)
Quarter: 2011Q4

REPORT INFORMATION
  Report Type: 
  Country: None (occurrence: None)
  Receive Date: 20111109
  Receipt Date: 20111109
  Transmission Date: 20120403
  Serious: Yes (Life-Threatening)
  Sender: FDA-Public Use
  Company Number: None

PATIENT
  Sex: Female

DRUGS (1)
  1. AVELOX [Suspect]
     Dosage: 400MG ONCE IV ONCE
     Route: 042

REACTIONS (5)
  - INFUSION RELATED REACTION [None]
  - CYANOSIS [None]
  - CONVULSION [None]
  - OXYGEN SATURATION DECREASED [None]
  - HEART RATE DECREASED [None]
